FAERS Safety Report 9785101 (Version 3)
Quarter: 2014Q1

REPORT INFORMATION
  Report Type: Report from Study
  Country: GB (occurrence: GB)
  Receive Date: 20131227
  Receipt Date: 20140127
  Transmission Date: 20141002
  Serious: Yes (Hospitalization)
  Sender: FDA-Public Use
  Company Number: GB-ROCHE-1323862

PATIENT
  Age: 89 Year
  Sex: Male

DRUGS (6)
  1. BEVACIZUMAB [Suspect]
     Indication: COLON CANCER
     Route: 042
     Dates: start: 20130513, end: 20131001
  2. PARACETAMOL [Concomitant]
     Route: 048
  3. METOCLOPRAMIDE [Concomitant]
     Indication: NAUSEA
     Route: 048
  4. RANITIDINE [Concomitant]
     Indication: NAUSEA
     Route: 048
  5. SENNA [Concomitant]
     Indication: CONSTIPATION
     Dosage: TWO
     Route: 048
  6. AUGMENTIN [Concomitant]
     Indication: LOWER RESPIRATORY TRACT INFECTION
     Route: 048

REACTIONS (1)
  - Dyspnoea [Recovered/Resolved]
